FAERS Safety Report 18362356 (Version 4)
Quarter: 2020Q4

REPORT INFORMATION
  Report Type: Spontaneous
  Country: US (occurrence: US)
  Receive Date: 20201008
  Receipt Date: 20201130
  Transmission Date: 20210114
  Serious: Yes (Hospitalization, Other)
  Sender: FDA-Public Use
  Company Number: US-PFIZER INC-2020388033

PATIENT
  Age: 32 Year
  Sex: Male
  Weight: 158.73 kg

DRUGS (9)
  1. SCHIFF MOVE FREE [Suspect]
     Active Substance: DIETARY SUPPLEMENT
     Indication: PAIN
     Dosage: UNK
     Dates: start: 2020
  2. OXYCODONE [Suspect]
     Active Substance: OXYCODONE
     Indication: PAIN
     Dosage: 525 MG
     Dates: start: 2000
  3. VICODIN [Suspect]
     Active Substance: ACETAMINOPHEN\HYDROCODONE BITARTRATE
     Indication: PAIN
     Dosage: 700 MG
     Dates: start: 2000
  4. SCHIFF MOVE FREE [Suspect]
     Active Substance: DIETARY SUPPLEMENT
     Indication: BACK PAIN
     Dosage: UNK, 2X/DAY
     Dates: start: 2018
  5. ADVIL [Suspect]
     Active Substance: IBUPROFEN
     Indication: BACK PAIN
     Dosage: 200 MG, UNK
     Dates: start: 2000
  6. ADVIL [Suspect]
     Active Substance: IBUPROFEN
     Indication: PAIN
     Dosage: 600-750 MG
     Dates: start: 2000
  7. BAYER BACK AND BODY EXTRA STRENGTH [Suspect]
     Active Substance: ASPIRIN\CAFFEINE
     Indication: PAIN
     Dosage: 500 MG
     Dates: start: 2020
  8. VICODIN [Suspect]
     Active Substance: ACETAMINOPHEN\HYDROCODONE BITARTRATE
     Indication: BACK PAIN
     Dosage: UNK, 2X/DAY
  9. BAYER BACK AND BODY EXTRA STRENGTH [Suspect]
     Active Substance: ASPIRIN\CAFFEINE
     Indication: BACK PAIN
     Dosage: 500 MG, 2X/DAY
     Dates: start: 2012

REACTIONS (4)
  - Intervertebral disc disorder [Not Recovered/Not Resolved]
  - Memory impairment [Not Recovered/Not Resolved]
  - Condition aggravated [Not Recovered/Not Resolved]
  - Cardiac disorder [Not Recovered/Not Resolved]

NARRATIVE: CASE EVENT DATE: 2001
